FAERS Safety Report 7624436-0 (Version None)
Quarter: 2011Q3

REPORT INFORMATION
  Report Type: 
  Country: None (occurrence: None)
  Receive Date: 20110712
  Receipt Date: 20110628
  Transmission Date: 20111222
  Serious: Yes (Hospitalization, Other)
  Sender: FDA-Public Use
  Company Number: 2011145477

PATIENT
  Age: 9 Year
  Sex: Female
  Weight: 39.4 kg

DRUGS (11)
  1. RANITIDINE [Concomitant]
  2. ACETAMINOPHEN [Concomitant]
  3. SODIUM CHLORIDE [Concomitant]
  4. DALTEPARIN SODIUM [Suspect]
     Indication: PULMONARY EMBOLISM
     Dosage: 5395 IU, 2X/DAY, SUBCUTANEOUS;
     Dates: start: 20110627
  5. DALTEPARIN SODIUM [Suspect]
     Indication: ATRIAL THROMBOSIS
     Dosage: 5395 IU, 2X/DAY, SUBCUTANEOUS;
     Dates: start: 20110627
  6. DALTEPARIN SODIUM [Suspect]
     Indication: PULMONARY EMBOLISM
     Dosage: 5395 IU, 2X/DAY, SUBCUTANEOUS;
     Dates: start: 20110513, end: 20110626
  7. DALTEPARIN SODIUM [Suspect]
     Indication: ATRIAL THROMBOSIS
     Dosage: 5395 IU, 2X/DAY, SUBCUTANEOUS;
     Dates: start: 20110513, end: 20110626
  8. HEPARIN [Concomitant]
  9. ZOFRAN [Concomitant]
  10. EMLA [Concomitant]
  11. BACTRIM [Concomitant]

REACTIONS (2)
  - SEIZURE LIKE PHENOMENA [None]
  - HAEMORRHAGE INTRACRANIAL [None]
